FAERS Safety Report 7303379-6 (Version None)
Quarter: 2011Q1

REPORT INFORMATION
  Report Type: 
  Country: None (occurrence: None)
  Receive Date: 20110221
  Receipt Date: 20110215
  Transmission Date: 20110831
  Serious: Yes (Other)
  Sender: FDA-Public Use
  Company Number: US-PERRIGO-11US001298

PATIENT
  Sex: Male
  Weight: 90.703 kg

DRUGS (7)
  1. DILANTIN [Concomitant]
     Indication: CONVULSION
     Dosage: 400 MG, QD IN AM
     Route: 048
     Dates: start: 20040101
  2. TEGRETOL [Concomitant]
     Indication: EPILEPSY
     Dosage: 700 MG, BID
     Route: 048
     Dates: start: 19870101
  3. DILANTIN [Concomitant]
     Dosage: 100 MG, QD IN PM
     Route: 048
     Dates: start: 20040101
  4. POLYETHYLENE GLYCOL 3350 [Suspect]
     Indication: CONSTIPATION
     Dosage: ENTIRE CAPFUL, SINGLE
     Route: 048
     Dates: start: 20110214, end: 20110214
  5. ZANTAC [Concomitant]
     Indication: GASTRIC DISORDER
     Dosage: 150 MG, BID
     Route: 048
     Dates: start: 20000101
  6. PROZAC [Concomitant]
     Indication: DEPRESSION
     Dosage: 150 MG, QD
     Route: 048
     Dates: end: 20110210
  7. POLYETHYLENE GLYCOL 3350 [Suspect]
     Dosage: UNK, SINGLE
     Route: 048

REACTIONS (2)
  - INCORRECT DOSE ADMINISTERED [None]
  - CONVULSION [None]
